FAERS Safety Report 9827672 (Version 4)
Quarter: 2014Q4

REPORT INFORMATION
  Report Type: Spontaneous
  Country: US (occurrence: US)
  Receive Date: 20140117
  Receipt Date: 20141223
  Transmission Date: 20150529
  Serious: Yes (Death, Other)
  Sender: FDA-Public Use
  Company Number: US-PFIZER INC-2014012727

PATIENT
  Age: 54 Year
  Sex: Male
  Weight: 64.4 kg

DRUGS (5)
  1. XARELTO [Concomitant]
     Active Substance: RIVAROXABAN
     Dosage: UNK
     Dates: end: 20140125
  2. PERCOCET [Concomitant]
     Active Substance: ACETAMINOPHEN\OXYCODONE HYDROCHLORIDE
     Dosage: UNK
  3. KLONOPIN [Concomitant]
     Active Substance: CLONAZEPAM
     Dosage: UNK
  4. FENTANYL. [Concomitant]
     Active Substance: FENTANYL
     Dosage: UNK
  5. SUTENT [Suspect]
     Active Substance: SUNITINIB MALATE
     Indication: METASTATIC RENAL CELL CARCINOMA
     Dosage: 50 MG, DAILY (CYCLIC)
     Dates: end: 201401

REACTIONS (14)
  - Blood urine present [Unknown]
  - Back pain [Unknown]
  - Decreased appetite [Unknown]
  - Oral pain [Unknown]
  - Renal embolism [Unknown]
  - Osteonecrosis of jaw [Unknown]
  - Pain in jaw [Unknown]
  - Glossodynia [Unknown]
  - Death [Fatal]
  - Poor dental condition [Unknown]
  - Weight decreased [Unknown]
  - Tooth abscess [Unknown]
  - Pain in extremity [Unknown]
  - Mood altered [Unknown]

NARRATIVE: CASE EVENT DATE: 20140414
